FAERS Safety Report 15319832 (Version 2)
Quarter: 2018Q3

REPORT INFORMATION
  Report Type: Spontaneous
  Country: JP (occurrence: JP)
  Receive Date: 20180827
  Receipt Date: 20180827
  Transmission Date: 20181010
  Serious: Yes (Death, Life-Threatening, Other)
  Sender: FDA-Public Use
  Company Number: JP-ROCHE-2161789

PATIENT
  Age: 59 Year
  Sex: Female
  Weight: 41 kg

DRUGS (4)
  1. AVASTIN [Suspect]
     Active Substance: BEVACIZUMAB
     Indication: OVARIAN CANCER
     Route: 041
     Dates: start: 20170112, end: 20171107
  2. PACLITAXEL. [Suspect]
     Active Substance: PACLITAXEL
     Indication: MALIGNANT PERITONEAL NEOPLASM
     Dosage: DOSE INTERVAL UNCERTAINTY
     Route: 041
     Dates: start: 20171012, end: 20171130
  3. AVASTIN [Suspect]
     Active Substance: BEVACIZUMAB
     Indication: MALIGNANT PERITONEAL NEOPLASM
  4. CARBOPLATIN. [Suspect]
     Active Substance: CARBOPLATIN
     Indication: MALIGNANT PERITONEAL NEOPLASM
     Dosage: DOSE INTERVAL UNCERTAINTY
     Route: 041
     Dates: start: 20171012, end: 20171130

REACTIONS (5)
  - Vaginal fistula [Not Recovered/Not Resolved]
  - Tumour necrosis [Unknown]
  - Ileal perforation [Recovering/Resolving]
  - Malignant peritoneal neoplasm [Fatal]
  - Proteinuria [Recovering/Resolving]

NARRATIVE: CASE EVENT DATE: 20171108
